FAERS Safety Report 17518610 (Version 1)
Quarter: 2020Q1

REPORT INFORMATION
  Report Type: Spontaneous
  Country: US (occurrence: US)
  Receive Date: 20200310
  Receipt Date: 20200310
  Transmission Date: 20200409
  Serious: Yes (Hospitalization, Other)
  Sender: FDA-Public Use
  Company Number: US-QUAGEN PHARMA LLC-2020QUALIT00043

PATIENT
  Age: 28 Year
  Sex: Female

DRUGS (4)
  1. CHOLESTYRAMINE. [Interacting]
     Active Substance: CHOLESTYRAMINE
  2. METHIMAZOLE. [Interacting]
     Active Substance: METHIMAZOLE
  3. PROPYLTHIOURACIL. [Suspect]
     Active Substance: PROPYLTHIOURACIL
  4. HYDROCORTISONE. [Interacting]
     Active Substance: HYDROCORTISONE

REACTIONS (3)
  - Acute hepatic failure [Unknown]
  - Drug-induced liver injury [Unknown]
  - Thyrotoxic crisis [Unknown]
